FAERS Safety Report 5144531-8 (Version None)
Quarter: 2006Q4

REPORT INFORMATION
  Report Type: 
  Country: None (occurrence: None)
  Receive Date: 20061031
  Receipt Date: 20060830
  Transmission Date: 20070319
  Serious: Yes (Hospitalization)
  Sender: FDA-Public Use
  Company Number: RB-3517-2006

PATIENT
  Age: 33 Year
  Sex: Female

DRUGS (2)
  1. SUBUTEX [Suspect]
     Indication: DRUG DEPENDENCE
     Dosage: SEE IMAGE
  2. SUBUTEX [Suspect]
     Indication: DRUG DEPENDENCE
     Dosage: SEE IMAGE

REACTIONS (4)
  - DRUG EXPOSURE DURING PREGNANCY [None]
  - INTENTIONAL DRUG MISUSE [None]
  - LYMPHOEDEMA [None]
  - UNWANTED PREGNANCY [None]
